FAERS Safety Report 8034623-8 (Version None)
Quarter: 2012Q1

REPORT INFORMATION
  Report Type: 
  Country: None (occurrence: None)
  Receive Date: 20120110
  Receipt Date: 20120103
  Transmission Date: 20120608
  Serious: Yes (Hospitalization, Other)
  Sender: FDA-Public Use
  Company Number: US-MERCK-1103USA02107

PATIENT
  Age: 67 Year
  Sex: Female
  Weight: 51 kg

DRUGS (4)
  1. FOSAMAX [Suspect]
     Route: 048
     Dates: start: 19950101, end: 20010205
  2. FOSAMAX [Suspect]
     Route: 048
     Dates: start: 19950101, end: 20010205
  3. FOSAMAX [Suspect]
     Indication: BONE DENSITY DECREASED
     Route: 048
     Dates: start: 20010330, end: 20050727
  4. FOSAMAX [Suspect]
     Indication: OSTEOPOROSIS
     Route: 048
     Dates: start: 20010330, end: 20050727

REACTIONS (62)
  - BACK DISORDER [None]
  - CAROTID BRUIT [None]
  - TOOTH FRACTURE [None]
  - GINGIVAL INFECTION [None]
  - ASTHMA [None]
  - CYSTITIS [None]
  - UTERINE DISORDER [None]
  - GASTROOESOPHAGEAL REFLUX DISEASE [None]
  - FISTULA DISCHARGE [None]
  - SPONDYLOLISTHESIS [None]
  - ARTHRALGIA [None]
  - NEOPLASM [None]
  - MITRAL VALVE INCOMPETENCE [None]
  - HYPONATRAEMIA [None]
  - CHRONIC SINUSITIS [None]
  - BLOOD CHOLESTEROL INCREASED [None]
  - OSTEOARTHRITIS [None]
  - SCIATICA [None]
  - RADIUS FRACTURE [None]
  - PYOGENIC GRANULOMA [None]
  - TOOTH ABSCESS [None]
  - TONSILLAR DISORDER [None]
  - MOUTH CYST [None]
  - BLOOD PRESSURE INCREASED [None]
  - ABSCESS ORAL [None]
  - CARDIAC DISORDER [None]
  - BREAST CANCER IN SITU [None]
  - PNEUMONIA [None]
  - COUGH [None]
  - CONSTIPATION [None]
  - ORAL DISORDER [None]
  - BLADDER DISORDER [None]
  - DIARRHOEA [None]
  - BACK PAIN [None]
  - MITRAL VALVE PROLAPSE [None]
  - HYPERTENSION [None]
  - INTERVERTEBRAL DISC PROTRUSION [None]
  - CARDIAC MURMUR [None]
  - AORTIC STENOSIS [None]
  - ARTHROPATHY [None]
  - CELLULITIS [None]
  - GINGIVITIS [None]
  - MENISCUS LESION [None]
  - SPINAL COLUMN STENOSIS [None]
  - TOOTH DISORDER [None]
  - PAIN IN EXTREMITY [None]
  - INFLAMMATORY BOWEL DISEASE [None]
  - GINGIVAL BLEEDING [None]
  - OEDEMA PERIPHERAL [None]
  - GINGIVAL ULCERATION [None]
  - OSTEOMYELITIS [None]
  - CLOSTRIDIAL INFECTION [None]
  - WEIGHT DECREASED [None]
  - STREPTOCOCCAL INFECTION [None]
  - CARDIAC VALVE DISEASE [None]
  - FOOT FRACTURE [None]
  - STOMATITIS [None]
  - VERTEBRAL FORAMINAL STENOSIS [None]
  - ORAL CANDIDIASIS [None]
  - LOOSE TOOTH [None]
  - HAEMORRHOIDS [None]
  - BRONCHITIS [None]
